FAERS Safety Report 5307649-2 (Version None)
Quarter: 2007Q2

REPORT INFORMATION
  Report Type: 
  Country: None (occurrence: None)
  Receive Date: 20070425
  Receipt Date: 20070413
  Transmission Date: 20071010
  Serious: Yes (Other)
  Sender: FDA-Public Use
  Company Number: BE-PFIZER INC-2007017195

PATIENT
  Sex: Female
  Weight: 71 kg

DRUGS (2)
  1. CHAMPIX [Suspect]
     Indication: SMOKING CESSATION THERAPY
     Route: 048
     Dates: start: 20070101, end: 20070224
  2. TENORMIN [Concomitant]
     Route: 048

REACTIONS (8)
  - AMNESIA [None]
  - BRAIN NEOPLASM [None]
  - DISTURBANCE IN ATTENTION [None]
  - HEADACHE [None]
  - NOCTURIA [None]
  - PSYCHOMOTOR SKILLS IMPAIRED [None]
  - SPEECH DISORDER [None]
  - VERTIGO [None]
